FAERS Safety Report 6336191-5 (Version None)
Quarter: 2009Q3

REPORT INFORMATION
  Report Type: 
  Country: None (occurrence: None)
  Receive Date: 20090831
  Receipt Date: 20090831
  Transmission Date: 20100115
  Serious: No
  Sender: FDA-Public Use
  Company Number: None

PATIENT
  Sex: Male
  Weight: 108.4097 kg

DRUGS (2)
  1. GEODON [Suspect]
     Indication: SCHIZOPHRENIA
     Dosage: 20 MG ANY TIME
     Dates: start: 20090729
  2. GEODON [Suspect]
     Indication: SCHIZOPHRENIA
     Dosage: 20 MG ANY TIME
     Dates: start: 20090812

REACTIONS (1)
  - FEELING HOT [None]
